FAERS Safety Report 22032257 (Version 2)
Quarter: 2023Q2

REPORT INFORMATION
  Report Type: Spontaneous
  Country: EG (occurrence: None)
  Receive Date: 20230224
  Receipt Date: 20230420
  Transmission Date: 20230722
  Serious: Yes (Other)
  Sender: FDA-Public Use
  Company Number: EG-ROCHE-3291561

PATIENT
  Age: 44 Year
  Sex: Male
  Weight: 120 kg

DRUGS (1)
  1. MABTHERA [Suspect]
     Active Substance: RITUXIMAB
     Indication: Lymphoma
     Dosage: ON 06/FEB/2023, A SECOND TRIAL OF ADMINISTRATING RITUXIMAB WAS PERFORMED AT A RATE OF 25ML/HR THEN I
     Route: 041
     Dates: start: 20230119

REACTIONS (4)
  - Laryngeal oedema [Unknown]
  - Dysphonia [Unknown]
  - Pruritus [Unknown]
  - Angioedema [Unknown]
